FAERS Safety Report 20578921 (Version 1)
Quarter: 2022Q1

REPORT INFORMATION
  Report Type: Spontaneous
  Country: US (occurrence: None)
  Receive Date: 20220310
  Receipt Date: 20220310
  Transmission Date: 20220423
  Serious: No
  Sender: FDA-Public Use
  Company Number: None

PATIENT
  Age: 56 Year
  Sex: Male
  Weight: 163 kg

DRUGS (1)
  1. DEXAMETHASONE [Suspect]
     Active Substance: DEXAMETHASONE
     Dates: start: 20201123, end: 20201130

REACTIONS (11)
  - Nausea [None]
  - Vomiting [None]
  - Malaise [None]
  - Asthenia [None]
  - Drug intolerance [None]
  - Hyperglycaemia [None]
  - Blood potassium increased [None]
  - Blood sodium increased [None]
  - Blood creatinine increased [None]
  - PCO2 decreased [None]
  - Lipase increased [None]

NARRATIVE: CASE EVENT DATE: 20201130
